FAERS Safety Report 13774835 (Version 1)
Quarter: 2017Q3

REPORT INFORMATION
  Report Type: Spontaneous
  Country: JP (occurrence: JP)
  Receive Date: 20170720
  Receipt Date: 20170720
  Transmission Date: 20171127
  Serious: Yes (Other)
  Sender: FDA-Public Use
  Company Number: JP-TEVA-790016ISR

PATIENT
  Age: 16 Year
  Sex: Male

DRUGS (2)
  1. TRISENOX [Suspect]
     Active Substance: ARSENIC TRIOXIDE
     Indication: ACUTE PROMYELOCYTIC LEUKAEMIA
     Route: 065
  2. STEROID OINTMENT [Concomitant]

REACTIONS (3)
  - Administration site discolouration [Unknown]
  - Rhabdomyolysis [Unknown]
  - Urticaria [Unknown]
